FAERS Safety Report 6458575-7 (Version None)
Quarter: 2009Q4

REPORT INFORMATION
  Report Type: 
  Country: None (occurrence: None)
  Receive Date: 20091126
  Receipt Date: 20091118
  Transmission Date: 20100525
  Serious: Yes (Other)
  Sender: FDA-Public Use
  Company Number: US-RB-025840-09

PATIENT
  Age: 67 Year
  Sex: Female

DRUGS (3)
  1. MUCINEX D [Suspect]
     Indication: UPPER RESPIRATORY TRACT CONGESTION
     Dosage: TOOK 2 TABLETS ON MONDAY, 1 AND A 1/2 TABLETS ON TUESDAY AND 1 TABLET TODAY
     Route: 048
     Dates: start: 20091116
  2. MUCINEX D [Suspect]
     Indication: FEELING ABNORMAL
     Dosage: TOOK 2 TABLETS ON MONDAY, 1 AND A 1/2 TABLETS ON TUESDAY AND 1 TABLET TODAY
     Route: 048
     Dates: start: 20091116
  3. ZITHROMAX [Suspect]
     Indication: FEELING ABNORMAL
     Dates: start: 20091116

REACTIONS (4)
  - APHONIA [None]
  - EPISTAXIS [None]
  - PSYCHOMOTOR HYPERACTIVITY [None]
  - WRONG TECHNIQUE IN DRUG USAGE PROCESS [None]
